FAERS Safety Report 8130997-8 (Version None)
Quarter: 2012Q1

REPORT INFORMATION
  Report Type: 
  Country: None (occurrence: None)
  Receive Date: 20120208
  Receipt Date: 20120208
  Transmission Date: 20120608
  Serious: Yes (Hospitalization)
  Sender: FDA-Public Use
  Company Number: None

PATIENT
  Age: 72 Year
  Sex: Male

DRUGS (1)
  1. RANITIDINE [Suspect]
     Dosage: MG
     Dates: start: 20110905, end: 20110923

REACTIONS (6)
  - DEVICE RELATED SEPSIS [None]
  - FEBRILE NEUTROPENIA [None]
  - STAPHYLOCOCCAL BACTERAEMIA [None]
  - ACINETOBACTER BACTERAEMIA [None]
  - LEUKOPENIA [None]
  - BLOOD SODIUM [None]
